FAERS Safety Report 9278305 (Version 1)
Quarter: 2013Q2

REPORT INFORMATION
  Report Type: Spontaneous
  Country: KR (occurrence: KR)
  Receive Date: 20130508
  Receipt Date: 20130508
  Transmission Date: 20140414
  Serious: Yes (Other)
  Sender: FDA-Public Use
  Company Number: KR-PFIZER INC-2013140382

PATIENT
  Sex: 0

DRUGS (1)
  1. BENEFIX [Suspect]
     Indication: HAEMOPHILIA
     Dosage: UNK
     Dates: start: 20130423

REACTIONS (2)
  - Rash [Unknown]
  - Swelling [Unknown]
